FAERS Safety Report 9258951 (Version 1)
Quarter: 2013Q2

REPORT INFORMATION
  Report Type: Spontaneous
  Country: IT (occurrence: IT)
  Receive Date: 20130426
  Receipt Date: 20130426
  Transmission Date: 20140414
  Serious: Yes (Disabling)
  Sender: FDA-Public Use
  Company Number: IT-GLAXOSMITHKLINE-B0887295A

PATIENT
  Age: 54 Year
  Sex: Female

DRUGS (3)
  1. ZELITREX [Suspect]
     Indication: OPHTHALMIC HERPES ZOSTER
     Dosage: 500MG PER DAY
     Route: 048
     Dates: start: 20100730, end: 20101002
  2. ZELITREX [Suspect]
     Indication: OPHTHALMIC HERPES ZOSTER
     Dosage: 3G PER DAY
     Route: 048
     Dates: start: 20100715, end: 20100730
  3. LOTEMAX [Suspect]
     Indication: OPHTHALMIC HERPES ZOSTER
     Route: 050
     Dates: start: 20100715, end: 20100730

REACTIONS (1)
  - Blepharitis [Recovered/Resolved with Sequelae]
